APPROVED DRUG PRODUCT: ZELBORAF
Active Ingredient: VEMURAFENIB
Strength: 240MG
Dosage Form/Route: TABLET;ORAL
Application: N202429 | Product #001
Applicant: HOFFMANN LA ROCHE INC
Approved: Aug 17, 2011 | RLD: Yes | RS: Yes | Type: RX

PATENTS:
Patent 8470818 | Expires: Aug 2, 2026
Patent 8470818 | Expires: Aug 2, 2026
Patent 8143271 | Expires: Jun 21, 2026
Patent 9447089 | Expires: Jun 6, 2032
Patent 7863288 | Expires: Jun 20, 2029
Patent 8741920 | Expires: Jul 27, 2030
Patent 7504509 | Expires: Oct 22, 2026